FAERS Safety Report 9142903 (Version 1)
Quarter: 2013Q1

REPORT INFORMATION
  Report Type: Spontaneous
  Country: US (occurrence: US)
  Receive Date: 20130306
  Receipt Date: 20130306
  Transmission Date: 20140127
  Serious: No
  Sender: FDA-Public Use
  Company Number: US-PFIZER INC-2013073336

PATIENT
  Sex: Male
  Weight: 68 kg

DRUGS (1)
  1. NARDIL [Suspect]
     Indication: DEPRESSION
     Dosage: 60 MG, 2X/DAY
     Dates: start: 1983

REACTIONS (1)
  - Drug ineffective [Unknown]
